FAERS Safety Report 17408023 (Version 2)
Quarter: 2022Q3

REPORT INFORMATION
  Report Type: Spontaneous
  Country: ES (occurrence: ES)
  Receive Date: 20200212
  Receipt Date: 20220629
  Transmission Date: 20221027
  Serious: Yes (Other)
  Sender: FDA-Public Use
  Company Number: None

PATIENT
  Age: 72 Year
  Sex: Male

DRUGS (22)
  1. VALSARTAN [Suspect]
     Active Substance: VALSARTAN
     Indication: Hypertension
     Dosage: 1 DF, FILM-COATED TABLET
     Route: 065
  2. LERCANIDIPINE HYDROCHLORIDE [Suspect]
     Active Substance: LERCANIDIPINE HYDROCHLORIDE
     Indication: Hypertension
     Dosage: 1 DF, QD
     Route: 065
  3. CLOPIDOGREL BISULFATE [Suspect]
     Active Substance: CLOPIDOGREL BISULFATE
     Indication: Prophylaxis
     Dosage: 1 DF, QD
     Route: 065
  4. TAMSULOSIN HYDROCHLORIDE [Suspect]
     Active Substance: TAMSULOSIN HYDROCHLORIDE
     Indication: Benign prostatic hyperplasia
     Dosage: 1 DF, BID
     Route: 065
  5. TAMSULOSIN HYDROCHLORIDE [Suspect]
     Active Substance: TAMSULOSIN HYDROCHLORIDE
     Dosage: UNK
     Route: 065
  6. SERTRALINE [Suspect]
     Active Substance: SERTRALINE HYDROCHLORIDE
     Indication: Behaviour disorder
     Dosage: 0.5 DF, QD
     Route: 065
  7. RANITIDINE [Suspect]
     Active Substance: RANITIDINE
     Indication: Prophylaxis
     Dosage: 1 DF, QD
     Route: 065
  8. CITICOLINE SODIUM [Suspect]
     Active Substance: CITICOLINE SODIUM
     Indication: Prophylaxis
     Dosage: UNK
     Route: 048
  9. RISPERIDONE [Suspect]
     Active Substance: RISPERIDONE
     Indication: Epilepsy
     Dosage: UNK
     Route: 065
  10. RISPERIDONE [Suspect]
     Active Substance: RISPERIDONE
     Indication: Behaviour disorder
  11. LEVETIRACETAM [Suspect]
     Active Substance: LEVETIRACETAM
     Indication: Product used for unknown indication
     Dosage: 1 DF, QD
     Route: 065
  12. LEVETIRACETAM [Suspect]
     Active Substance: LEVETIRACETAM
     Dosage: 0.5 DF, QD (AM)
     Route: 065
  13. LEVETIRACETAM [Suspect]
     Active Substance: LEVETIRACETAM
     Dosage: 0.5 DF, QD (QAM)
     Route: 065
  14. ATORVASTATIN [Suspect]
     Active Substance: ATORVASTATIN
     Indication: Hypercholesterolaemia
     Dosage: 1 DF, QD
     Route: 065
  15. LORMETAZEPAM [Suspect]
     Active Substance: LORMETAZEPAM
     Indication: Insomnia
     Dosage: 1 DF, QD
     Route: 065
  16. SERENOA REPENS WHOLE [Suspect]
     Active Substance: SERENOA REPENS WHOLE
     Indication: Benign prostatic hyperplasia
     Dosage: 1 DF, UNK
     Route: 065
  17. INSULIN GLARGINE [Suspect]
     Active Substance: INSULIN GLARGINE
     Indication: Diabetes mellitus
     Dosage: UNK UNK, UNK
     Route: 065
  18. XIGDUO XR [Suspect]
     Active Substance: DAPAGLIFLOZIN PROPANEDIOL\METFORMIN HYDROCHLORIDE
     Indication: Diabetes mellitus
     Dosage: 1 DF, BID
     Route: 065
  19. GEMFIBROZIL [Suspect]
     Active Substance: GEMFIBROZIL
     Indication: Hypercholesterolaemia
     Dosage: 1 DF, TABLET
     Route: 065
  20. KEPPRA [Suspect]
     Active Substance: LEVETIRACETAM
     Indication: Product used for unknown indication
     Dosage: 0.5 DF, QD (QAM)
     Route: 065
  21. ASPIRIN [Suspect]
     Active Substance: ASPIRIN
     Indication: Prophylaxis
     Dosage: UNK
     Route: 065
  22. ASPIRIN [Suspect]
     Active Substance: ASPIRIN
     Indication: Prophylaxis
     Dosage: 1 DF, QD
     Route: 065

REACTIONS (7)
  - Hypertension [Recovered/Resolved]
  - Hyperglycaemia [Recovered/Resolved with Sequelae]
  - Blood cholesterol increased [Recovered/Resolved]
  - Fatigue [Unknown]
  - Blood triglycerides increased [Recovered/Resolved]
  - Treatment noncompliance [Recovered/Resolved]
  - Overdose [Recovered/Resolved]

NARRATIVE: CASE EVENT DATE: 20160501
